FAERS Safety Report 15889450 (Version 2)
Quarter: 2019Q1

REPORT INFORMATION
  Report Type: Spontaneous
  Country: US (occurrence: US)
  Receive Date: 20190130
  Receipt Date: 20190226
  Transmission Date: 20190417
  Serious: No
  Sender: FDA-Public Use
  Company Number: US-VIIV HEALTHCARE LIMITED-US2019014385

PATIENT
  Age: 50 Year
  Sex: Male

DRUGS (1)
  1. TIVICAY [Suspect]
     Active Substance: DOLUTEGRAVIR SODIUM
     Indication: PRODUCT USED FOR UNKNOWN INDICATION

REACTIONS (1)
  - Rash maculo-papular [Not Recovered/Not Resolved]
